FAERS Safety Report 16892466 (Version 2)
Quarter: 2019Q4

REPORT INFORMATION
  Report Type: Spontaneous
  Country: US (occurrence: US)
  Receive Date: 20191007
  Receipt Date: 20191007
  Transmission Date: 20200122
  Serious: Yes (Hospitalization, Other)
  Sender: FDA-Public Use
  Company Number: US-ASTRAZENECA-2019SF36800

PATIENT
  Age: 83 Year
  Sex: Male
  Weight: 70.3 kg

DRUGS (2)
  1. TUDORZA PRESSAIR [Suspect]
     Active Substance: ACLIDINIUM BROMIDE
     Indication: CHRONIC OBSTRUCTIVE PULMONARY DISEASE
     Dosage: 400 MCG, TWO TIMES A DAY
     Route: 055
     Dates: start: 2009
  2. DULERA [Concomitant]
     Active Substance: FORMOTEROL FUMARATE DIHYDRATE\MOMETASONE FUROATE
     Indication: CHRONIC OBSTRUCTIVE PULMONARY DISEASE
     Dosage: 200
     Dates: start: 2009

REACTIONS (5)
  - Glaucoma [Unknown]
  - Device issue [Unknown]
  - Cardiac failure congestive [Not Recovered/Not Resolved]
  - Blindness [Not Recovered/Not Resolved]
  - Cranial nerve infection [Unknown]

NARRATIVE: CASE EVENT DATE: 2014
